FAERS Safety Report 7416840-0 (Version None)
Quarter: 2011Q1

REPORT INFORMATION
  Report Type: 
  Country: None (occurrence: None)
  Receive Date: 20110302
  Receipt Date: 20101122
  Transmission Date: 20110831
  Serious: No
  Sender: FDA-Public Use
  Company Number: 022555

PATIENT
  Sex: Male
  Weight: 107 kg

DRUGS (5)
  1. MICARDIS [Concomitant]
  2. FISH OIL [Concomitant]
  3. PENTASA [Concomitant]
  4. CIMZIA [Suspect]
     Indication: CROHN'S DISEASE
     Dosage: 400 MG, INDUCTION DOSE, 20MG TWO SHOTS SUBCUTANEOUS
     Route: 058
     Dates: start: 20101120
  5. AZASAN [Concomitant]

REACTIONS (4)
  - FATIGUE [None]
  - INJECTION SITE REACTION [None]
  - ARTHRALGIA [None]
  - VISUAL IMPAIRMENT [None]
